FAERS Safety Report 5196203-1 (Version None)
Quarter: 2007Q1

REPORT INFORMATION
  Report Type: 
  Country: None (occurrence: None)
  Receive Date: 20070102
  Receipt Date: 20061222
  Transmission Date: 20070707
  Serious: Yes (Other)
  Sender: FDA-Public Use
  Company Number: GB-PFIZER INC-2006155791

PATIENT
  Age: 59 Year
  Sex: Male
  Weight: 70 kg

DRUGS (4)
  1. LYRICA [Suspect]
     Indication: NEURALGIA
     Route: 048
  2. ATENOLOL [Concomitant]
     Route: 048
  3. CO-DYDRAMOL [Concomitant]
  4. NAPROXEN [Concomitant]

REACTIONS (2)
  - ABDOMINAL DISTENSION [None]
  - RECTAL HAEMORRHAGE [None]
